FAERS Safety Report 6216476-3 (Version None)
Quarter: 2009Q2

REPORT INFORMATION
  Report Type: 
  Country: None (occurrence: None)
  Receive Date: 20090605
  Receipt Date: 20090529
  Transmission Date: 20091009
  Serious: No
  Sender: FDA-Public Use
  Company Number: US-EISAI INC.-E3810-02877-SPO-US

PATIENT
  Age: 41 Year
  Sex: Female

DRUGS (1)
  1. ACIPHEX [Suspect]
     Route: 048
     Dates: start: 20090416, end: 20090501

REACTIONS (1)
  - CYSTITIS [None]
